FAERS Safety Report 11117160 (Version 4)
Quarter: 2017Q2

REPORT INFORMATION
  Report Type: Spontaneous
  Country: US (occurrence: US)
  Receive Date: 20150515
  Receipt Date: 20170419
  Transmission Date: 20170829
  Serious: No
  Sender: FDA-Public Use
  Company Number: US-PFIZER INC-2015161905

PATIENT
  Sex: Female

DRUGS (1)
  1. REVATIO [Suspect]
     Active Substance: SILDENAFIL CITRATE
     Dosage: UNK
     Dates: end: 201701

REACTIONS (6)
  - Malaise [Unknown]
  - Drug dose omission [Unknown]
  - Drug ineffective [Unknown]
  - Dyspnoea [Unknown]
  - Tracheal disorder [Unknown]
  - Palpitations [Unknown]

NARRATIVE: CASE EVENT DATE: 201701
